FAERS Safety Report 22517864 (Version 2)
Quarter: 2023Q2

REPORT INFORMATION
  Report Type: Spontaneous
  Country: US (occurrence: US)
  Receive Date: 20230604
  Receipt Date: 20230628
  Transmission Date: 20230722
  Serious: Yes (Death, Life-Threatening, Hospitalization, Other)
  Sender: FDA-Public Use
  Company Number: US-BRISTOL-MYERS SQUIBB COMPANY-2023-076204

PATIENT
  Age: 81 Year
  Sex: Male
  Weight: 45.9 kg

DRUGS (18)
  1. AZACITIDINE [Suspect]
     Active Substance: AZACITIDINE
     Indication: Acute myeloid leukaemia
     Dosage: 75 MG/M2
     Route: 042
     Dates: start: 20210805, end: 20210811
  2. MIRALAX [Concomitant]
     Active Substance: POLYETHYLENE GLYCOL 3350
  3. BISOPROLOL [Concomitant]
     Active Substance: BISOPROLOL
  4. BUPROPION [Concomitant]
     Active Substance: BUPROPION
  5. TRILIPIX [Concomitant]
     Active Substance: FENOFIBRIC ACID
  6. BENZONATATE [Concomitant]
     Active Substance: BENZONATATE
  7. ROBITUSSIN (GUAIFENESIN) [Concomitant]
     Active Substance: GUAIFENESIN
  8. FLONASE [Concomitant]
     Active Substance: FLUTICASONE PROPIONATE
  9. LORATADINE [Concomitant]
     Active Substance: LORATADINE
  10. TRANEXAMIC ACID [Concomitant]
     Active Substance: TRANEXAMIC ACID
  11. COAGULATION FACTOR IX RECOMBINANT HUMAN [Concomitant]
     Active Substance: COAGULATION FACTOR IX RECOMBINANT HUMAN
  12. SALINE NASAL MIST [Concomitant]
  13. ONDANSETRON [Concomitant]
     Active Substance: ONDANSETRON
  14. TYLENOL [Concomitant]
     Active Substance: ACETAMINOPHEN
  15. BENADRYL [Concomitant]
     Active Substance: DIPHENHYDRAMINE HYDROCHLORIDE
  16. LACTATED RINGERS SOLUTION [Concomitant]
     Active Substance: CALCIUM CHLORIDE\POTASSIUM CHLORIDE\SODIUM CHLORIDE\SODIUM LACTATE
  17. ACETAMINOPHEN [Concomitant]
     Active Substance: ACETAMINOPHEN
  18. DIPHENHYDRAMINE [Concomitant]
     Active Substance: DIPHENHYDRAMINE
     Indication: Product used for unknown indication

REACTIONS (7)
  - Respiratory failure [Fatal]
  - Septic shock [Fatal]
  - Bradycardia [Fatal]
  - Acute kidney injury [Unknown]
  - Off label use [Unknown]
  - Aspartate aminotransferase increased [Unknown]
  - Alanine aminotransferase increased [Unknown]

NARRATIVE: CASE EVENT DATE: 20210901
